FAERS Safety Report 10079112 (Version 1)
Quarter: 2014Q2

REPORT INFORMATION
  Report Type: Spontaneous
  Country: US (occurrence: None)
  Receive Date: 20140411
  Receipt Date: 20140411
  Transmission Date: 20141212
  Serious: Yes (Life-Threatening)
  Sender: FDA-Public Use
  Company Number: None

PATIENT
  Age: 52 Year
  Sex: Female
  Weight: 81.65 kg

DRUGS (5)
  1. NUCYNTA [Suspect]
     Indication: PAIN MANAGEMENT
     Dosage: 75 MG 1 IN MORNING 1 AT NIGHT
     Route: 048
     Dates: start: 20140312, end: 20140312
  2. NORAC [Concomitant]
  3. HTC [Concomitant]
  4. NEXIUM [Concomitant]
  5. OXYCODONE [Concomitant]

REACTIONS (2)
  - Dysphemia [None]
  - Dyspnoea [None]
